FAERS Safety Report 23081300 (Version 1)
Quarter: 2023Q4

REPORT INFORMATION
  Report Type: Spontaneous
  Country: CA (occurrence: CA)
  Receive Date: 20231018
  Receipt Date: 20231018
  Transmission Date: 20240109
  Serious: Yes (Other)
  Sender: FDA-Public Use
  Company Number: CA-BAYER-2023A144417

PATIENT
  Sex: Female
  Weight: 138 kg

DRUGS (2)
  1. XARELTO [Suspect]
     Active Substance: RIVAROXABAN
     Indication: Product used for unknown indication
     Dosage: UNK
     Route: 048
  2. INFLECTRA [Suspect]
     Active Substance: INFLIXIMAB-DYYB
     Indication: Crohn^s disease
     Dosage: 60 MG, QD
     Route: 042
     Dates: start: 20220513

REACTIONS (4)
  - Haematochezia [Unknown]
  - Polypectomy [Unknown]
  - Gastrointestinal inflammation [Unknown]
  - Intestinal haemorrhage [Unknown]
